FAERS Safety Report 11409336 (Version 5)
Quarter: 2019Q1

REPORT INFORMATION
  Report Type: Report from Study
  Country: US (occurrence: US)
  Receive Date: 20150824
  Receipt Date: 20190130
  Transmission Date: 20190417
  Serious: No
  Sender: FDA-Public Use
  Company Number: PHHY2015US028263

PATIENT
  Age: 49 Year
  Sex: Female

DRUGS (1)
  1. GILENYA [Suspect]
     Active Substance: FINGOLIMOD HYDROCHLORIDE
     Indication: MULTIPLE SCLEROSIS
     Dosage: UNK, QD
     Route: 048

REACTIONS (10)
  - Lymphocyte count decreased [Not Recovered/Not Resolved]
  - Haemangioma of skin [Unknown]
  - Melanocytic naevus [Unknown]
  - Solar lentigo [Unknown]
  - Xerosis [Unknown]
  - Muscular weakness [Unknown]
  - Seborrhoeic dermatitis [Unknown]
  - Blood alkaline phosphatase increased [Unknown]
  - Neoplasm skin [Unknown]
  - Urinary tract infection [Recovered/Resolved]

NARRATIVE: CASE EVENT DATE: 20140909
